FAERS Safety Report 9693779 (Version 1)
Quarter: 2013Q4

REPORT INFORMATION
  Report Type: Spontaneous
  Country: IT (occurrence: IT)
  Receive Date: 20131118
  Receipt Date: 20131118
  Transmission Date: 20140711
  Serious: Yes (Hospitalization)
  Sender: FDA-Public Use
  Company Number: IT-PFIZER INC-2013326671

PATIENT
  Age: 77 Year
  Sex: Male

DRUGS (4)
  1. ALPRAZOLAM [Suspect]
     Dosage: 1 DF, 1X/DAY
     Route: 048
     Dates: start: 20130101, end: 20130814
  2. CONTROL [Suspect]
     Dosage: 2.5 MG, 1X/DAY
     Route: 048
     Dates: start: 20130101, end: 20130814
  3. ENTACT [Suspect]
     Indication: DEPRESSION
     Dosage: 10 MG, 1X/DAY
     Route: 048
     Dates: start: 20130101, end: 20130814
  4. LORMETAZEPAM [Suspect]
     Dosage: 1 DF, 1X/DAY
     Route: 048
     Dates: start: 20130101, end: 20130814

REACTIONS (1)
  - Sopor [Recovered/Resolved]
